FAERS Safety Report 7092322-3 (Version None)
Quarter: 2010Q4

REPORT INFORMATION
  Report Type: 
  Country: None (occurrence: None)
  Receive Date: 20101109
  Receipt Date: 20101105
  Transmission Date: 20110411
  Serious: Yes (Hospitalization)
  Sender: FDA-Public Use
  Company Number: GB-BRISTOL-MYERS SQUIBB COMPANY-15370430

PATIENT
  Age: 58 Year
  Sex: Male

DRUGS (8)
  1. CARBOPLATIN [Suspect]
     Route: 042
     Dates: start: 20100424
  2. GEMCITABINE [Suspect]
     Route: 042
     Dates: start: 20100424
  3. DALTEPARIN SODIUM [Concomitant]
     Indication: LUNG NEOPLASM MALIGNANT
     Route: 065
     Dates: start: 20100430, end: 20100607
  4. HUMALOG [Concomitant]
     Dosage: 1 DF = 2 DOSE
     Route: 058
  5. FENTANYL [Concomitant]
     Dates: start: 20100605
  6. ORAMORPH SR [Concomitant]
     Route: 048
  7. GABAPENTIN [Concomitant]
     Route: 048
  8. SENNA [Concomitant]
     Dosage: 1 DF = 2 TABS
     Route: 048

REACTIONS (4)
  - DEHYDRATION [None]
  - DIABETIC KETOACIDOSIS [None]
  - HAEMOGLOBIN DECREASED [None]
  - MALLORY-WEISS SYNDROME [None]
